FAERS Safety Report 10405981 (Version 1)
Quarter: 2014Q3

REPORT INFORMATION
  Report Type: Spontaneous
  Country: US (occurrence: US)
  Receive Date: 20140825
  Receipt Date: 20140825
  Transmission Date: 20150326
  Serious: No
  Sender: FDA-Public Use
  Company Number: US-009507513-1408USA009303

PATIENT
  Sex: Male

DRUGS (2)
  1. ADVAIR HFA [Concomitant]
     Active Substance: FLUTICASONE PROPIONATE\SALMETEROL XINAFOATE
  2. PROVENTIL [Suspect]
     Active Substance: ALBUTEROL
     Dosage: 90 MCG/ FOUR TIMES DAILY AS NEEDE

REACTIONS (3)
  - Product quality issue [Unknown]
  - Dyspnoea [Unknown]
  - Respiratory therapy [Unknown]
